FAERS Safety Report 4596777-5 (Version None)
Quarter: 2005Q1

REPORT INFORMATION
  Report Type: 
  Country: None (occurrence: None)
  Receive Date: 20050228
  Receipt Date: 20040621
  Transmission Date: 20050727
  Serious: Yes (Death)
  Sender: FDA-Public Use
  Company Number: 8298

PATIENT
  Age: 63 Year
  Sex: Male

DRUGS (2)
  1. METHOTREXATE [Suspect]
     Indication: ADULT T-CELL LYMPHOMA/LEUKAEMIA
     Dosage: 135 MG TOTAL IT
     Route: 038
     Dates: start: 20021224
  2. PREDNISOLONE [Concomitant]

REACTIONS (5)
  - CYTOMEGALOVIRUS INFECTION [None]
  - LEUKAEMIC INFILTRATION HEPATIC [None]
  - LEUKOENCEPHALOPATHY [None]
  - MALIGNANT NEOPLASM PROGRESSION [None]
  - RESPIRATORY DISORDER [None]
